FAERS Safety Report 8876533 (Version 1)
Quarter: 2012Q4

REPORT INFORMATION
  Report Type: 
  Country: IE (occurrence: IE)
  Receive Date: 20121030
  Receipt Date: 20121030
  Transmission Date: 20130627
  Serious: Yes (Other)
  Sender: FDA-Public Use
  Company Number: IE-BAXTER-2012BAX020412

PATIENT
  Age: 50 Year
  Sex: Male

DRUGS (7)
  1. FLEXBUMIN [Suspect]
     Indication: LIVER DISORDER
     Route: 065
     Dates: start: 20120906, end: 20120906
  2. AKINETON RETARD [Concomitant]
     Indication: MANIA
     Route: 048
     Dates: start: 20120906
  3. THIAMINE [Concomitant]
     Indication: VITAMIN SUPPLEMENTATION
     Route: 048
     Dates: start: 20120906
  4. PROTIUM [Concomitant]
     Indication: DRUG USE FOR UNKNOWN INDICATION
     Route: 048
     Dates: start: 20120906
  5. LIBRIUM [Concomitant]
     Indication: SEDATIVE THERAPY
     Route: 048
     Dates: start: 20120906
  6. SALBUTAMOL [Concomitant]
     Indication: ASTHMA
     Dates: start: 20120906
  7. SALBUTAMOL [Concomitant]
     Indication: INHALATION THERAPY

REACTIONS (2)
  - Body temperature increased [Recovered/Resolved]
  - Hypotension [Recovered/Resolved]
